FAERS Safety Report 12622872 (Version 1)
Quarter: 2016Q3

REPORT INFORMATION
  Report Type: Spontaneous
  Country: DE (occurrence: DE)
  Receive Date: 20160804
  Receipt Date: 20160804
  Transmission Date: 20161109
  Serious: Yes (Other)
  Sender: FDA-Public Use
  Company Number: DE-INCYTE CORPORATION-2016IN004688

PATIENT
  Sex: Male

DRUGS (3)
  1. JAKAFI [Suspect]
     Active Substance: RUXOLITINIB
     Dosage: 15 MG, BID
     Route: 065
     Dates: start: 20140318, end: 20140414
  2. JAKAFI [Suspect]
     Active Substance: RUXOLITINIB
     Dosage: 10 MG, BID
     Route: 065
     Dates: start: 20140415, end: 20151110
  3. JAKAFI [Suspect]
     Active Substance: RUXOLITINIB
     Indication: PRODUCT USED FOR UNKNOWN INDICATION
     Dosage: 5 MG, BID
     Route: 065
     Dates: start: 20130716, end: 20140317

REACTIONS (3)
  - Renal cell carcinoma [Unknown]
  - Haemoglobin decreased [Unknown]
  - Metastases to lung [Unknown]

NARRATIVE: CASE EVENT DATE: 201309
